FAERS Safety Report 8617814-4 (Version None)
Quarter: 2012Q3

REPORT INFORMATION
  Report Type: 
  Country: None (occurrence: None)
  Receive Date: 20120824
  Receipt Date: 20120411
  Transmission Date: 20120928
  Serious: No
  Sender: FDA-Public Use
  Company Number: US-ASTRAZENECA-2012SE12245

PATIENT
  Age: 31 Year
  Sex: Female

DRUGS (5)
  1. TRUVADA [Concomitant]
     Indication: HIV INFECTION
     Dosage: 300/200 MG
     Route: 048
     Dates: start: 20100702
  2. SYMBICORT [Suspect]
     Indication: ASTHMA
     Dosage: 160/4.5 MCG, UNKNOWN FREQUENCY
     Route: 055
     Dates: start: 20100922, end: 20110824
  3. NORVIR [Concomitant]
     Indication: HIV INFECTION
     Route: 048
     Dates: start: 20100702
  4. SYMBICORT [Suspect]
     Indication: CHRONIC OBSTRUCTIVE PULMONARY DISEASE
     Dosage: 160/4.5 MCG, UNKNOWN FREQUENCY
     Route: 055
     Dates: start: 20100922, end: 20110824
  5. ATAZANAVIR [Concomitant]
     Indication: HIV INFECTION
     Route: 048
     Dates: start: 20100702

REACTIONS (2)
  - CUSHINGOID [None]
  - HIRSUTISM [None]
